FAERS Safety Report 5944451-2 (Version None)
Quarter: 2008Q4

REPORT INFORMATION
  Report Type: 
  Country: None (occurrence: None)
  Receive Date: 20081107
  Receipt Date: 20081024
  Transmission Date: 20090506
  Serious: Yes (Hospitalization)
  Sender: FDA-Public Use
  Company Number: FR-JNJFOC-20081100822

PATIENT
  Sex: Male

DRUGS (5)
  1. IXPRIM [Suspect]
  2. IXPRIM [Suspect]
     Indication: HAEMORRHOIDS
  3. NEXIUM [Suspect]
     Indication: EROSIVE DUODENITIS
     Route: 048
  4. BI-PROFENID [Suspect]
     Route: 048
  5. BI-PROFENID [Suspect]
     Indication: HAEMORRHOIDS
     Route: 048

REACTIONS (2)
  - HAEMOLYTIC ANAEMIA [None]
  - OVERDOSE [None]
